FAERS Safety Report 24222076 (Version 2)
Quarter: 2024Q3

REPORT INFORMATION
  Report Type: Spontaneous
  Country: US (occurrence: US)
  Receive Date: 20240819
  Receipt Date: 20240821
  Transmission Date: 20241017
  Serious: No
  Sender: SANDOZ
  Company Number: US-SANDOZ-SDZ2024US073053

PATIENT
  Age: 12 Year
  Sex: Male

DRUGS (2)
  1. HYRIMOZ [Suspect]
     Active Substance: ADALIMUMAB-ADAZ
     Indication: Arthritis
     Dosage: 40 MG, QW ( PRE-FILLED PEN)
     Route: 058
     Dates: start: 20240515
  2. HYRIMOZ [Suspect]
     Active Substance: ADALIMUMAB-ADAZ
     Indication: Arthritis
     Dosage: 40 MG, QW ( PRE-FILLED PEN)
     Route: 058
     Dates: start: 20240515

REACTIONS (2)
  - Pain in extremity [Not Recovered/Not Resolved]
  - Injection site pain [Not Recovered/Not Resolved]

NARRATIVE: CASE EVENT DATE: 20240515
